FAERS Safety Report 8808669 (Version 2)
Quarter: 2012Q4

REPORT INFORMATION
  Report Type: 
  Country: MX (occurrence: MX)
  Receive Date: 20120926
  Receipt Date: 20121009
  Transmission Date: 20130627
  Serious: Yes (Death, Other)
  Sender: FDA-Public Use
  Company Number: PHHY2012MX082795

PATIENT
  Age: 91 Year
  Sex: Female

DRUGS (1)
  1. GLIVEC [Suspect]
     Indication: CHRONIC MYELOID LEUKAEMIA
     Dosage: 300 mg, daily
     Route: 048

REACTIONS (3)
  - Death [Fatal]
  - Pneumonia [Unknown]
  - Respiratory disorder [Unknown]
